FAERS Safety Report 10950023 (Version 1)
Quarter: 2015Q1

REPORT INFORMATION
  Report Type: Spontaneous
  Country: US (occurrence: None)
  Receive Date: 20150226
  Receipt Date: 20150226
  Transmission Date: 20150721
  Serious: Yes (Other)
  Sender: FDA-Public Use
  Company Number: TPA2011A06051

PATIENT
  Age: 41 Year
  Sex: Female
  Weight: 61.24 kg

DRUGS (2)
  1. PREVACID [Suspect]
     Active Substance: LANSOPRAZOLE
     Indication: GASTRIC ULCER
     Route: 048
     Dates: start: 2000, end: 2000
  2. PREVACID [Suspect]
     Active Substance: LANSOPRAZOLE
     Indication: ABDOMINAL PAIN UPPER
     Route: 048
     Dates: start: 2000, end: 2000

REACTIONS (8)
  - Feeling hot [None]
  - Dyspnoea [None]
  - Loss of consciousness [None]
  - Vomiting [None]
  - Hypotension [None]
  - Pruritus [None]
  - Feeling cold [None]
  - Urticaria [None]

NARRATIVE: CASE EVENT DATE: 2000
